FAERS Safety Report 6298042-7 (Version None)
Quarter: 2009Q3

REPORT INFORMATION
  Report Type: 
  Country: None (occurrence: None)
  Receive Date: 20090804
  Receipt Date: 20090804
  Transmission Date: 20100115
  Serious: Yes (Other)
  Sender: FDA-Public Use
  Company Number: None

PATIENT
  Age: 60 Year
  Weight: 83.9154 kg

DRUGS (2)
  1. ZICAM COLD REMEDY NASAL GEL MATRIXX INITIATIVES, INC [Suspect]
     Indication: NASOPHARYNGITIS
     Dosage: 3 TIMES A DAY
     Dates: start: 20090629, end: 20090702
  2. ZICAM EXTREME CONGESTION RELIEF NASAL GEL MATRIXX INITIATIVES, INC [Suspect]
     Indication: NASOPHARYNGITIS

REACTIONS (4)
  - ANOSMIA [None]
  - DYSGEUSIA [None]
  - INSOMNIA [None]
  - LOSS OF LIBIDO [None]
